FAERS Safety Report 7880043-6 (Version None)
Quarter: 2011Q4

REPORT INFORMATION
  Report Type: 
  Country: None (occurrence: None)
  Receive Date: 20111101
  Receipt Date: 20111026
  Transmission Date: 20120403
  Serious: Yes (Death, Hospitalization, Disabling, Other)
  Sender: FDA-Public Use
  Company Number: US-CELGENEUS-163-21880-10011311

PATIENT
  Sex: Male

DRUGS (10)
  1. REVLIMID [Suspect]
     Dosage: 5 MILLIGRAM
     Route: 048
     Dates: start: 20080301
  2. REVLIMID [Suspect]
     Dosage: 10 MILLIGRAM
     Route: 048
     Dates: start: 20071201
  3. HYDROXYZINE [Concomitant]
     Route: 065
  4. LASIX [Concomitant]
     Route: 065
  5. MORPHINE [Concomitant]
     Route: 065
  6. PLAVIX [Concomitant]
     Route: 065
  7. NORVASC [Concomitant]
     Route: 065
  8. ALLOPURINOL [Concomitant]
     Route: 065
  9. REVLIMID [Suspect]
     Dosage: 5 MILLIGRAM
     Route: 048
     Dates: start: 20091201, end: 20100101
  10. ASPIRIN [Concomitant]
     Route: 065

REACTIONS (9)
  - RENAL FAILURE [None]
  - ACUTE MYOCARDIAL INFARCTION [None]
  - FALL [None]
  - CHRONIC OBSTRUCTIVE PULMONARY DISEASE [None]
  - DEMENTIA [None]
  - PELVIC FRACTURE [None]
  - CARDIAC FAILURE CONGESTIVE [None]
  - PERIPHERAL ARTERIAL OCCLUSIVE DISEASE [None]
  - PERFORMANCE STATUS DECREASED [None]
